FAERS Safety Report 18056361 (Version 1)
Quarter: 2020Q3

REPORT INFORMATION
  Report Type: Spontaneous
  Country: SE (occurrence: SE)
  Receive Date: 20200722
  Receipt Date: 20200722
  Transmission Date: 20201103
  Serious: Yes (Hospitalization)
  Sender: FDA-Public Use
  Company Number: SE-JNJFOC-20200721604

PATIENT
  Age: 62 Year
  Sex: Female

DRUGS (8)
  1. RISPERDAL CONSTA [Suspect]
     Active Substance: RISPERIDONE
  2. RISPERDAL CONSTA [Suspect]
     Active Substance: RISPERIDONE
     Indication: PRODUCT USED FOR UNKNOWN INDICATION
     Route: 030
     Dates: start: 20170830, end: 20180117
  3. RISPERDAL CONSTA [Suspect]
     Active Substance: RISPERIDONE
  4. RISPERDAL [Suspect]
     Active Substance: RISPERIDONE
     Dosage: 1+0+0,5 (=3 MG)
     Route: 048
     Dates: start: 20180224, end: 20180310
  5. RISPERDAL CONSTA [Suspect]
     Active Substance: RISPERIDONE
  6. LITHIUM SULFATE [Suspect]
     Active Substance: LITHIUM SULFATE
     Indication: PRODUCT USED FOR UNKNOWN INDICATION
     Dosage: 2+0+2
     Route: 048
     Dates: start: 20171123, end: 20180310
  7. RISPERDAL [Suspect]
     Active Substance: RISPERIDONE
     Indication: PRODUCT USED FOR UNKNOWN INDICATION
     Dosage: 1+0+0 (=2 MG)
     Route: 048
     Dates: start: 20171031, end: 20180209
  8. RISPERDAL [Suspect]
     Active Substance: RISPERIDONE
     Dosage: 1+0+1
     Route: 048
     Dates: start: 20180210, end: 20180223

REACTIONS (2)
  - Toxicity to various agents [Recovered/Resolved]
  - Neuroleptic malignant syndrome [Recovered/Resolved]

NARRATIVE: CASE EVENT DATE: 20180310
